FAERS Safety Report 11672574 (Version 1)
Quarter: 2015Q4

REPORT INFORMATION
  Report Type: Spontaneous
  Country: US (occurrence: None)
  Receive Date: 20151027
  Receipt Date: 20151027
  Transmission Date: 20160304
  Serious: Yes (Life-Threatening, Other)
  Sender: FDA-Public Use
  Company Number: None

PATIENT
  Age: 63 Year
  Sex: Female
  Weight: 104.33 kg

DRUGS (10)
  1. MAGNESIUM [Concomitant]
     Active Substance: MAGNESIUM
  2. LISINOPRIL. [Concomitant]
     Active Substance: LISINOPRIL
  3. MOTRIN [Concomitant]
     Active Substance: IBUPROFEN
  4. SINGULAIR (MONTELUKAST) [Concomitant]
  5. VENTOLIN [Concomitant]
     Active Substance: ALBUTEROL SULFATE
  6. APPLE CIDER VINIGAR [Concomitant]
  7. SINGULAIR [Suspect]
     Active Substance: MONTELUKAST SODIUM
     Indication: ASTHMA
     Dosage: TAKEN BY MOUTH
     Dates: start: 20151015, end: 20151022
  8. VITAMIN D [Concomitant]
     Active Substance: CHOLECALCIFEROL
  9. FLOVENT HFA [Concomitant]
     Active Substance: FLUTICASONE PROPIONATE
  10. ZYRTEC [Concomitant]
     Active Substance: CETIRIZINE HYDROCHLORIDE

REACTIONS (10)
  - Asthma [None]
  - Fatigue [None]
  - Anxiety [None]
  - Chest discomfort [None]
  - Product substitution issue [None]
  - Feeling of despair [None]
  - Pulmonary congestion [None]
  - Insomnia [None]
  - Dizziness [None]
  - Asphyxia [None]

NARRATIVE: CASE EVENT DATE: 20151022
